FAERS Safety Report 7303818-0 (Version None)
Quarter: 2011Q1

REPORT INFORMATION
  Report Type: 
  Country: None (occurrence: None)
  Receive Date: 20110221
  Receipt Date: 20090323
  Transmission Date: 20110831
  Serious: Yes (Death, Hospitalization)
  Sender: FDA-Public Use
  Company Number: A0725904A

PATIENT
  Sex: Female
  Weight: 73.5 kg

DRUGS (2)
  1. PLACEBO [Suspect]
     Route: 048
     Dates: start: 20080401
  2. PACLITAXEL [Suspect]
     Dosage: 80MGM2 CYCLIC
     Route: 042
     Dates: start: 20080401

REACTIONS (1)
  - MULTI-ORGAN FAILURE [None]
